FAERS Safety Report 22200966 (Version 1)
Quarter: 2023Q2

REPORT INFORMATION
  Report Type: Spontaneous
  Country: DE (occurrence: DE)
  Receive Date: 20230412
  Receipt Date: 20230412
  Transmission Date: 20230721
  Serious: Yes (Other)
  Sender: FDA-Public Use
  Company Number: DE-ALK-ABELLO A/S-2023AA001496

PATIENT

DRUGS (1)
  1. ACARIZAX [Suspect]
     Active Substance: DERMATOPHAGOIDES FARINAE\DERMATOPHAGOIDES PTERONYSSINUS
     Indication: Product used for unknown indication
     Dosage: 12 SQ-HDM
     Route: 060
     Dates: start: 202006, end: 202010

REACTIONS (6)
  - Laryngeal oedema [Not Recovered/Not Resolved]
  - Odynophagia [Not Recovered/Not Resolved]
  - Lip swelling [Recovered/Resolved]
  - Ear pruritus [Recovered/Resolved]
  - Throat irritation [Recovered/Resolved]
  - Chest discomfort [Recovered/Resolved]

NARRATIVE: CASE EVENT DATE: 20200101
